FAERS Safety Report 5797868-3 (Version None)
Quarter: 2008Q2

REPORT INFORMATION
  Report Type: 
  Country: None (occurrence: None)
  Receive Date: 20080630
  Receipt Date: 20080612
  Transmission Date: 20081010
  Serious: Yes (Hospitalization)
  Sender: FDA-Public Use
  Company Number: DSA_32061_2008

PATIENT
  Age: 55 Year
  Sex: Female

DRUGS (6)
  1. MONO-TILDIEM (MONO-TILDIEM - DILTIAZEM [Suspect]
     Indication: DRUG USE FOR UNKNOWN INDICATION
     Dosage: (DF ORAL)
     Route: 048
     Dates: start: 20080301, end: 20080407
  2. SERMION /00396401/ (SERMION - NICERGOLINE) (NOT SPECIFIED) [Suspect]
     Indication: DRUG USE FOR UNKNOWN INDICATION
     Dosage: (DF ORAL)
     Route: 048
     Dates: start: 20080305, end: 20080407
  3. ODRIK (ODRIK - TRANDOLAPRIL) (NOT SPECIFIED) [Suspect]
     Indication: DRUG USE FOR UNKNOWN INDICATION
     Dosage: (DF ORAL)
     Route: 048
     Dates: start: 20080201, end: 20080407
  4. VASTAREL (VASTAREL BIOPHARMA) [Suspect]
     Indication: DRUG USE FOR UNKNOWN INDICATION
     Dosage: (DF ORAL)
     Route: 048
     Dates: start: 20080201, end: 20080407
  5. LECTIL (LECTIL - BETAHISTINE HYDROCHLORIDE) (NOT SPECIFIED) [Suspect]
     Dosage: (DF ORAL)
     Route: 048
     Dates: start: 20080201, end: 20080407
  6. INEXIUM /01479302/ (INEXIUM - ESOMEPRAZOLE) (NOT SPECIFIED) [Suspect]
     Indication: DRUG USE FOR UNKNOWN INDICATION
     Dosage: (DF ORAL)
     Route: 048
     Dates: start: 20070801, end: 20080407

REACTIONS (2)
  - RASH MACULO-PAPULAR [None]
  - TOXIC SKIN ERUPTION [None]
